FAERS Safety Report 4827570-3 (Version None)
Quarter: 2005Q4

REPORT INFORMATION
  Report Type: 
  Country: None (occurrence: None)
  Receive Date: 20051114
  Receipt Date: 20051011
  Transmission Date: 20060501
  Serious: Yes (Other)
  Sender: FDA-Public Use
  Company Number: JP-NOVOPROD-247726

PATIENT
  Age: 77 Year
  Sex: Male
  Weight: 56 kg

DRUGS (7)
  1. NOVOSEVEN [Suspect]
     Indication: HAEMOPHILIA
     Dosage: 30 MG, QD
     Route: 042
     Dates: start: 20050924, end: 20050924
  2. NOVOSEVEN [Suspect]
     Dosage: 4.8 MG, QD
     Route: 042
     Dates: start: 20050925, end: 20050925
  3. NOVOSEVEN [Suspect]
     Dosage: 3.6 MG, QD
     Route: 042
     Dates: start: 20050926, end: 20050927
  4. NOVOSEVEN [Suspect]
     Dosage: 18 MG, QD
     Route: 042
     Dates: start: 20050930, end: 20050930
  5. NOVOSEVEN [Suspect]
     Dosage: 10.8 MG, QD
     Route: 042
     Dates: start: 20051001, end: 20051001
  6. NOVOSEVEN [Suspect]
     Dosage: 19.2 MG, QD
     Route: 042
     Dates: start: 20051010, end: 20051011
  7. NOVOSEVEN [Suspect]
     Dosage: 55.2 MG, QD
     Route: 042
     Dates: start: 20050923, end: 20050923

REACTIONS (2)
  - INCISION SITE HAEMORRHAGE [None]
  - WHITE BLOOD CELL COUNT INCREASED [None]
